FAERS Safety Report 4860162-9 (Version None)
Quarter: 2005Q4

REPORT INFORMATION
  Report Type: 
  Country: None (occurrence: None)
  Receive Date: 20051215
  Receipt Date: 20051207
  Transmission Date: 20060501
  Serious: Yes (Hospitalization)
  Sender: FDA-Public Use
  Company Number: 233472K05USA

PATIENT
  Age: 44 Year
  Sex: Male
  Weight: 72.7 kg

DRUGS (1)
  1. REBIF [Suspect]
     Indication: MULTIPLE SCLEROSIS
     Dosage: 44 MCG, 3 IN 1 WEEKS, SUBCUTANEOUS
     Route: 058
     Dates: start: 20000101, end: 20050505

REACTIONS (3)
  - BODY TEMPERATURE INCREASED [None]
  - INJECTION SITE CELLULITIS [None]
  - THERAPY NON-RESPONDER [None]
